FAERS Safety Report 7421451-7 (Version None)
Quarter: 2011Q2

REPORT INFORMATION
  Report Type: 
  Country: None (occurrence: None)
  Receive Date: 20110418
  Receipt Date: 20110412
  Transmission Date: 20111010
  Serious: Yes (Other)
  Sender: FDA-Public Use
  Company Number: US-B.I. PHARMACEUTICALS,INC./RIDGEFIELD-2011-BP-10693BP

PATIENT
  Age: 83 Year
  Sex: Female

DRUGS (21)
  1. LASIX [Concomitant]
  2. DILTIAZEM [Concomitant]
  3. CYMBALTA [Concomitant]
  4. IMDUR [Concomitant]
  5. LEVAQUIN [Concomitant]
  6. SYNTHROID [Concomitant]
  7. MOBIC [Concomitant]
     Dates: end: 20110409
  8. POTASSIUM [Concomitant]
  9. PRADAXA [Suspect]
     Indication: CEREBROVASCULAR ACCIDENT PROPHYLAXIS
     Dosage: 300 MG
     Route: 048
     Dates: start: 20110408, end: 20110408
  10. DUONEB [Concomitant]
     Indication: PNEUMONIA
  11. ZEBETA [Concomitant]
  12. HYDROXIZINE [Concomitant]
  13. BYSTOLIC [Concomitant]
  14. FLONASE [Concomitant]
  15. SPIRIVA [Concomitant]
  16. LYRICA [Concomitant]
  17. PRADAXA [Suspect]
     Indication: ATRIAL FIBRILLATION
     Dosage: 150 MG
     Route: 048
     Dates: start: 20100409, end: 20100410
  18. ASA (BABY) [Concomitant]
  19. CALCIUM [Concomitant]
  20. TRICOR [Concomitant]
  21. CARAFATE [Concomitant]

REACTIONS (3)
  - RENAL IMPAIRMENT [None]
  - ISCHAEMIC STROKE [None]
  - VOMITING [None]
